FAERS Safety Report 6758714-4 (Version None)
Quarter: 2010Q2

REPORT INFORMATION
  Report Type: 
  Country: None (occurrence: None)
  Receive Date: 20100602
  Receipt Date: 20100528
  Transmission Date: 20101027
  Serious: Yes (Death, Other)
  Sender: FDA-Public Use
  Company Number: 2010SP018731

PATIENT
  Age: 76 Year
  Sex: Male
  Weight: 58 kg

DRUGS (15)
  1. ROCURONIUM BROMIDE [Suspect]
     Indication: NEUROMUSCULAR BLOCKING THERAPY
     Dosage: SEE IMAGE
     Route: 040
     Dates: start: 20100325, end: 20100325
  2. ROCURONIUM BROMIDE [Suspect]
     Indication: NEUROMUSCULAR BLOCKING THERAPY
     Dosage: SEE IMAGE
     Route: 040
     Dates: start: 20100325, end: 20100325
  3. ROCURONIUM BROMIDE [Suspect]
     Indication: NEUROMUSCULAR BLOCKING THERAPY
     Dosage: SEE IMAGE
     Route: 040
     Dates: start: 20100325, end: 20100325
  4. ROCURONIUM BROMIDE [Suspect]
     Indication: NEUROMUSCULAR BLOCKING THERAPY
     Dosage: SEE IMAGE
     Route: 040
     Dates: start: 20100325, end: 20100325
  5. ROCURONIUM BROMIDE [Suspect]
     Indication: NEUROMUSCULAR BLOCKING THERAPY
     Dosage: SEE IMAGE
     Route: 040
     Dates: start: 20100325, end: 20100325
  6. ROCURONIUM BROMIDE [Suspect]
     Indication: NEUROMUSCULAR BLOCKING THERAPY
     Dosage: SEE IMAGE
     Route: 040
     Dates: start: 20100325, end: 20100325
  7. ROCURONIUM BROMIDE [Suspect]
     Indication: NEUROMUSCULAR BLOCKING THERAPY
     Dosage: SEE IMAGE
     Route: 040
     Dates: start: 20100325, end: 20100325
  8. ROCURONIUM BROMIDE [Suspect]
     Indication: NEUROMUSCULAR BLOCKING THERAPY
     Dosage: SEE IMAGE
     Route: 040
     Dates: start: 20100325, end: 20100325
  9. SEVOFLURANE (CON.) [Concomitant]
  10. FENTANYL (CON.) [Concomitant]
  11. DIPRIVAN (CON.) [Concomitant]
  12. LACTEC (CON.) [Concomitant]
  13. ALBUMIN (CON.) [Concomitant]
  14. RED CELL CONCENTRATE (CON.) [Concomitant]
  15. FRESH FROZEN PLASMA (CON.) [Concomitant]

REACTIONS (7)
  - GASTROINTESTINAL OEDEMA [None]
  - MUSCLE RIGIDITY [None]
  - MUSCLE SWELLING [None]
  - OEDEMA [None]
  - OPERATIVE HAEMORRHAGE [None]
  - PROCEDURAL COMPLICATION [None]
  - THERAPEUTIC RESPONSE DECREASED [None]
